FAERS Safety Report 6957968-9 (Version None)
Quarter: 2010Q3

REPORT INFORMATION
  Report Type: 
  Country: None (occurrence: None)
  Receive Date: 20100831
  Receipt Date: 20100825
  Transmission Date: 20110219
  Serious: Yes (Other)
  Sender: FDA-Public Use
  Company Number: US-RB-014346-10

PATIENT
  Age: 25 Year
  Sex: Female

DRUGS (3)
  1. SUBUTEX [Suspect]
     Indication: PRODUCT USED FOR UNKNOWN INDICATION
     Dosage: UNKNOWN DOSING DETAILS
     Route: 065
  2. SUBOXONE [Suspect]
     Dosage: OTHER DOSING DETAILS UNKNOWN
     Route: 060
     Dates: end: 20100201
  3. SUBOXONE [Suspect]
     Indication: DRUG DEPENDENCE
     Dosage: DOSES VARY
     Route: 060

REACTIONS (5)
  - ABORTION SPONTANEOUS [None]
  - CONVULSION [None]
  - DRUG EXPOSURE DURING PREGNANCY [None]
  - DRUG WITHDRAWAL SYNDROME [None]
  - FLUID RETENTION [None]
